FAERS Safety Report 17006351 (Version 1)
Quarter: 2019Q4

REPORT INFORMATION
  Report Type: Other
  Country: US (occurrence: US)
  Receive Date: 20191107
  Receipt Date: 20191107
  Transmission Date: 20200122
  Serious: No
  Sender: FDA-Public Use
  Company Number: US-RARE DISEASE THERAPEUTICS, INC.-2076606

PATIENT
  Age: 67 Year
  Sex: Male

DRUGS (3)
  1. ANAVIP [Suspect]
     Active Substance: PIT VIPER (CROTALINAE) IMMUNE GLOBULIN ANTIVENIN (EQUINE)
     Indication: SNAKE BITE
     Route: 042
     Dates: start: 201910, end: 201910
  2. CROFAB [Concomitant]
     Active Substance: CROTALIDAE POLYVALENT IMMUNE FAB (OVINE)
     Dates: start: 201910
  3. ANGIOTENSIN CONVERTING ENZYME (ACE) INHIBITOR [Concomitant]

REACTIONS (2)
  - Tachycardia [Recovered/Resolved]
  - Rash erythematous [Recovered/Resolved]

NARRATIVE: CASE EVENT DATE: 201910
